FAERS Safety Report 21490554 (Version 1)
Quarter: 2022Q4

REPORT INFORMATION
  Report Type: Spontaneous
  Country: US (occurrence: US)
  Receive Date: 20221021
  Receipt Date: 20221021
  Transmission Date: 20230113
  Serious: No
  Sender: FDA-Public Use
  Company Number: US-CELLTRION INC.-2022US013225

PATIENT

DRUGS (2)
  1. INFLECTRA [Suspect]
     Active Substance: INFLIXIMAB-DYYB
     Indication: Psoriatic arthropathy
     Dosage: DIRECTIONS: INJECT 600 MG FREQUENCY EVERY 4 WEEKS QUANTITY: 1 YEAR VIALS REFILLS: 13
  2. INFLECTRA [Suspect]
     Active Substance: INFLIXIMAB-DYYB
     Dosage: 700 MG CYCLIC (700 MG, CYCLIC (EVERY 4 WEEKS IN SODIUM CHLORIDE 0.9% INFUSION 250 MILLILITER(S), FOR
     Route: 042

REACTIONS (1)
  - Off label use [Unknown]
